FAERS Safety Report 8808795 (Version 1)
Quarter: 2012Q4

REPORT INFORMATION
  Report Type: Spontaneous
  Country: US (occurrence: None)
  Receive Date: 20120921
  Receipt Date: 20120921
  Transmission Date: 20130627
  Serious: No
  Sender: FDA-Public Use
  Company Number: None

PATIENT
  Age: 54 Year
  Sex: Female
  Weight: 81.65 kg

DRUGS (1)
  1. LAMOTRIGINE [Suspect]

REACTIONS (2)
  - Product substitution issue [None]
  - Drug ineffective [None]
